FAERS Safety Report 12147554 (Version 1)
Quarter: 2016Q1

REPORT INFORMATION
  Report Type: Spontaneous
  Country: FR (occurrence: FR)
  Receive Date: 20160304
  Receipt Date: 20160304
  Transmission Date: 20160526
  Serious: Yes (Hospitalization)
  Sender: FDA-Public Use
  Company Number: FR-ASTRAZENECA-2016SE22490

PATIENT
  Age: 16143 Day
  Sex: Female

DRUGS (12)
  1. SULFARLEM [Concomitant]
     Active Substance: ANETHOLTRITHION
  2. OMEPRAZOLE. [Concomitant]
     Active Substance: OMEPRAZOLE
  3. METHADONE [Suspect]
     Active Substance: METHADONE HYDROCHLORIDE
     Route: 048
  4. XEROQUEL [Suspect]
     Active Substance: QUETIAPINE FUMARATE
     Route: 048
  5. PAROXETINE [Concomitant]
     Active Substance: PAROXETINE\PAROXETINE HYDROCHLORIDE
  6. LEXOMIL [Concomitant]
     Active Substance: BROMAZEPAM
     Dosage: 1/4 PER DAY
  7. TERCIAN [Suspect]
     Active Substance: CYAMEMAZINE
     Route: 048
  8. TERCIAN [Suspect]
     Active Substance: CYAMEMAZINE
     Dosage: 7 BOXES OF TERCIAN 25 MG, ONCE/SINGLE ADMINISTRATION
     Route: 048
     Dates: start: 20160128, end: 20160128
  9. TRAMADOL. [Concomitant]
     Active Substance: TRAMADOL
  10. METEOSPASMYL [Concomitant]
     Active Substance: ALVERINE CITRATE\DIMETHICONE
  11. XEROQUEL [Suspect]
     Active Substance: QUETIAPINE FUMARATE
     Dosage: 7 BOXES OF XEROQUEL 300 MG, ONCE/SINGLE ADMINISTRATION
     Route: 048
     Dates: start: 20160128, end: 20160128
  12. THIOCOLCHICOSIDE [Concomitant]
     Active Substance: THIOCOLCHICOSIDE

REACTIONS (3)
  - Agitation [Unknown]
  - Coma [Recovered/Resolved]
  - Toxicity to various agents [Unknown]

NARRATIVE: CASE EVENT DATE: 20160128
